FAERS Safety Report 6645950-0 (Version None)
Quarter: 2010Q1

REPORT INFORMATION
  Report Type: 
  Country: None (occurrence: None)
  Receive Date: 20100323
  Receipt Date: 20100319
  Transmission Date: 20100710
  Serious: Yes (Death)
  Sender: FDA-Public Use
  Company Number: PHEH2010US03216

PATIENT
  Age: 53 Year
  Sex: Female
  Weight: 111 kg

DRUGS (1)
  1. EXJADE [Suspect]
     Indication: THROMBOCYTOPENIA
     Dosage: 600 MG, QD
     Route: 048
     Dates: start: 20080314, end: 20100301

REACTIONS (1)
  - DEATH [None]
